FAERS Safety Report 14360144 (Version 2)
Quarter: 2019Q4

REPORT INFORMATION
  Report Type: Spontaneous
  Country: DE (occurrence: DE)
  Receive Date: 20180106
  Receipt Date: 20191212
  Transmission Date: 20200122
  Serious: Yes (Hospitalization, Other)
  Sender: FDA-Public Use
  Company Number: DE-AUROBINDO-AUR-APL-2018-000515

PATIENT
  Age: 38 Year
  Sex: Female
  Weight: 64 kg

DRUGS (11)
  1. IBUPROFEN 600MG [Suspect]
     Active Substance: IBUPROFEN
     Indication: BACK PAIN
     Dosage: UNK
     Route: 048
     Dates: start: 20161024, end: 20170123
  2. PEPPERMINT OIL [Concomitant]
     Active Substance: PEPPERMINT OIL
     Indication: DYSPEPSIA
     Dosage: UNK
     Route: 065
  3. PANTOPRAZOLE SODIUM. [Concomitant]
     Active Substance: PANTOPRAZOLE SODIUM
     Indication: PROPHYLAXIS AGAINST GASTROINTESTINAL ULCER
     Dosage: AT THE MORNING
     Route: 048
     Dates: end: 20170123
  4. ESMYA [Suspect]
     Active Substance: ULIPRISTAL ACETATE
     Indication: UTERINE LEIOMYOMA
     Dosage: 5 MILLIGRAM, ONCE A DAY
     Route: 048
     Dates: start: 201611, end: 20170123
  5. IBUPROFEN 600MG [Suspect]
     Active Substance: IBUPROFEN
     Indication: EPICONDYLITIS
     Dosage: UNK
     Route: 048
     Dates: start: 20161024, end: 20161229
  6. KORODIN [Concomitant]
     Active Substance: CAMPHOR (SYNTHETIC)\MENTHOL
     Indication: FATIGUE
     Dosage: UNK
     Route: 065
  7. ORTOTON [Concomitant]
     Indication: HYPOTONIA
     Dosage: UNK 2 ONCE A DAY (AT THE EVENING)
     Route: 048
     Dates: end: 20170123
  8. ESMYA [Suspect]
     Active Substance: ULIPRISTAL ACETATE
     Indication: DYSMENORRHOEA
  9. IBUPROFEN 600MG [Suspect]
     Active Substance: IBUPROFEN
     Indication: DYSMENORRHOEA
     Dosage: UNK
     Route: 065
  10. KORODIN [Concomitant]
     Active Substance: CAMPHOR (SYNTHETIC)\MENTHOL
     Indication: EXERCISE TOLERANCE DECREASED
     Dosage: UNK
     Route: 065
     Dates: start: 20170120, end: 20170122
  11. NOVALGIN [Concomitant]
     Indication: PRODUCT USED FOR UNKNOWN INDICATION
     Dosage: UNK
     Route: 065
     Dates: start: 20161230, end: 20170123

REACTIONS (15)
  - Constipation [Recovered/Resolved]
  - Blood cholesterol increased [Unknown]
  - Autoimmune hepatitis [Recovered/Resolved]
  - Renal cyst [Recovered/Resolved]
  - Fallopian tube cyst [Recovered/Resolved]
  - Acute hepatic failure [Recovered/Resolved]
  - Drug-induced liver injury [Recovered/Resolved]
  - Blood urine [Recovered/Resolved]
  - Ovarian cyst [Recovered/Resolved]
  - Gastrooesophageal reflux disease [Recovered/Resolved]
  - International normalised ratio decreased [Unknown]
  - Hepatic cyst [Recovered/Resolved]
  - Influenza [Recovered/Resolved]
  - Prothrombin time shortened [Unknown]
  - Menorrhagia [Unknown]

NARRATIVE: CASE EVENT DATE: 201612
